FAERS Safety Report 5189685-2 (Version None)
Quarter: 2006Q4

REPORT INFORMATION
  Report Type: 
  Country: None (occurrence: None)
  Receive Date: 20061218
  Receipt Date: 20061204
  Transmission Date: 20070319
  Serious: Yes (Life-Threatening, Hospitalization, Other)
  Sender: FDA-Public Use
  Company Number: 2006136733

PATIENT
  Age: 16 Year
  Sex: Female
  Weight: 79 kg

DRUGS (16)
  1. CELEBREX [Suspect]
     Indication: GLIOBLASTOMA MULTIFORME
     Dosage: ORAL
     Route: 048
     Dates: start: 20060821
  2. FLUCONAZOLE [Suspect]
     Indication: VAGINAL CANDIDIASIS
     Dosage: 150 MG (150MG, 1 IN 1 D)
     Dates: start: 20061030
  3. THALIDOMIDE [Suspect]
     Indication: GLIOBLASTOMA MULTIFORME
     Dosage: 200 MG (200 MG,1 IN 1 D), ORAL
     Route: 048
     Dates: start: 20060821, end: 20061101
  4. FENOFIBRATE [Concomitant]
  5. ZOFRAN [Concomitant]
  6. MIRALAX [Concomitant]
  7. DIAZEPAM [Concomitant]
  8. CYCLOPHOSPHAMIDE [Concomitant]
  9. DEXAMETHASONE TAB [Concomitant]
  10. KEPPRA [Concomitant]
  11. ASPIRIN [Concomitant]
  12. LEVOTHYROXINE SODIUM [Concomitant]
  13. ZANTAC (RANITIDINE HYRDROCHLORIDE) [Concomitant]
  14. OXYCODONE HCL [Concomitant]
  15. CETIRIZINE (CETIRIZINE) [Concomitant]
  16. ETOPOSIDE [Concomitant]

REACTIONS (6)
  - CEREBROVASCULAR ACCIDENT [None]
  - COMPLEX PARTIAL SEIZURES [None]
  - GENITAL INFECTION FUNGAL [None]
  - PULMONARY ARTERY THROMBOSIS [None]
  - PULMONARY EMBOLISM [None]
  - VENOUS THROMBOSIS LIMB [None]
